FAERS Safety Report 9207031 (Version 1)
Quarter: 2013Q1

REPORT INFORMATION
  Report Type: Spontaneous
  Country: US (occurrence: None)
  Receive Date: 20120710
  Receipt Date: 20120710
  Transmission Date: 20140127
  Serious: Yes (Other)
  Sender: FDA-Public Use
  Company Number: 2012020143

PATIENT
  Age: 62 Year
  Sex: Female

DRUGS (1)
  1. SOMA [Suspect]
     Indication: SPINAL FUSION SURGERY
     Dosage: (350 MG, 4 IN 1 D)
     Route: 048

REACTIONS (1)
  - Drug withdrawal syndrome [None]
